FAERS Safety Report 14668453 (Version 1)
Quarter: 2018Q1

REPORT INFORMATION
  Report Type: Spontaneous
  Country: US (occurrence: US)
  Receive Date: 20180321
  Receipt Date: 20180321
  Transmission Date: 20180509
  Serious: Yes (Death)
  Sender: FDA-Public Use
  Company Number: None

PATIENT
  Age: 56 Year
  Sex: Female

DRUGS (8)
  1. ATENOLOL. [Concomitant]
     Active Substance: ATENOLOL
  2. LISINOPRIL. [Concomitant]
     Active Substance: LISINOPRIL
  3. VITAMIN D3 [Concomitant]
     Active Substance: CHOLECALCIFEROL
  4. PREDNISONE. [Concomitant]
     Active Substance: PREDNISONE
  5. CALCIUM CARBONATE. [Concomitant]
     Active Substance: CALCIUM CARBONATE
  6. LEVETIRACETAM. [Concomitant]
     Active Substance: LEVETIRACETAM
  7. CAPECITABINE. [Suspect]
     Active Substance: CAPECITABINE
     Indication: BREAST CANCER FEMALE
     Route: 048
  8. METFORMIN HCL [Concomitant]
     Active Substance: METFORMIN HYDROCHLORIDE

REACTIONS (1)
  - Death [None]
